FAERS Safety Report 14636252 (Version 2)
Quarter: 2018Q2

REPORT INFORMATION
  Report Type: Spontaneous
  Country: IT (occurrence: IT)
  Receive Date: 20180314
  Receipt Date: 20180521
  Transmission Date: 20180711
  Serious: Yes (Other)
  Sender: FDA-Public Use
  Company Number: IT-OTSUKA-2018_006103

PATIENT
  Age: 19 Year
  Sex: Female

DRUGS (27)
  1. CYTARABINE. [Suspect]
     Active Substance: CYTARABINE
     Dosage: 2000 MG/M2 2XDAY, CYCLIC (Q12H) CYCLE 7 CYCLICAL
     Route: 042
  2. FLUDARABINE [Suspect]
     Active Substance: FLUDARABINE PHOSPHATE
     Indication: ACUTE LYMPHOCYTIC LEUKAEMIA
     Dosage: 50MG/M2 DAY 3-4-5 CYCLICAL
     Route: 065
     Dates: start: 20150904
  3. DEXAMETHASONE SODIUM PHOSPHATE. [Suspect]
     Active Substance: DEXAMETHASONE SODIUM PHOSPHATE
     Indication: ACUTE LYMPHOCYTIC LEUKAEMIA
     Dosage: 5 MG/M2 2XDAY, CYCLIC DAY 1-5 (CYCLE 2) ;CYCLICAL
     Route: 048
  4. LENOGRASTIM [Suspect]
     Active Substance: LENOGRASTIM
     Indication: ACUTE LYMPHOCYTIC LEUKAEMIA
     Dosage: 10 UG/M2,DAILY, CYCLIC (CYCLE 7) , 8 TOHARVEST/ANC GREATER THAN 1.0; CYCLICAL
     Route: 058
  5. FILGRASTIM [Suspect]
     Active Substance: FILGRASTIM
     Dosage: 5 UG/KG DAILY, CYCLIC, 5 TO ANC }1.0 ; CYCLICAL
     Route: 058
  6. CYCLOPHOSPHAMIDE. [Suspect]
     Active Substance: CYCLOPHOSPHAMIDE
     Indication: ACUTE LYMPHOCYTIC LEUKAEMIA
     Dosage: 300 MG/M2 DAILY, CYCLIC  DAY -3 TO-1 ; CYCLICAL
     Route: 042
  7. CYCLOPHOSPHAMIDE. [Suspect]
     Active Substance: CYCLOPHOSPHAMIDE
     Dosage: 1000 MG/M2 DAILY, CYCLIC (CYCLE 2) ; CYCLICAL
     Route: 042
  8. BLINCYTO [Suspect]
     Active Substance: BLINATUMOMAB
     Indication: ACUTE LYMPHOCYTIC LEUKAEMIA
     Dosage: ONLY ONE CYCLE
     Route: 042
     Dates: start: 20161220
  9. CYTARABINE. [Suspect]
     Active Substance: CYTARABINE
     Indication: ACUTE LYMPHOCYTIC LEUKAEMIA
     Dosage: 75 MG/M2 DAILY, CYCLIC (CYCLE 2)
     Route: 042
  10. LENOGRASTIM [Suspect]
     Active Substance: LENOGRASTIM
     Dosage: 5 UG/KG DAILY, CYCLIC, 5 TO ANC } 1.0 ; CYCLICAL
     Route: 058
  11. IDARUBICIN HYDROCHLORIDE. [Suspect]
     Active Substance: IDARUBICIN HYDROCHLORIDE
     Indication: ACUTE LYMPHOCYTIC LEUKAEMIA
     Dosage: 12 MG/M2/D, CYCLIC; DAY 1,2 (CYCLE1 AND 2)CYCLICAL
     Route: 042
  12. FILGRASTIM [Suspect]
     Active Substance: FILGRASTIM
     Dosage: 5 UG/KG DAILY, CYCLIC, ANC{0.5 TO }1.0 (CYCLE 2); CYCLICAL;
     Route: 058
  13. MERCAPTOPURINE. [Suspect]
     Active Substance: MERCAPTOPURINE
     Indication: ACUTE LYMPHOCYTIC LEUKAEMIA
     Dosage: 60 MG/M2 DAILY, CYCLIC DAY 1-14 ; CYCLICAL
     Route: 048
  14. CYTARABINE. [Suspect]
     Active Substance: CYTARABINE
     Dosage: 75 MG/M2 DAILY, CYCLIC (CYCLE 2), DAY 2-5, 9-12 CYCLICAL
     Route: 058
  15. PREDNISONE. [Suspect]
     Active Substance: PREDNISONE
     Indication: ACUTE LYMPHOCYTIC LEUKAEMIA
     Dosage: 20 MG/M2 2XDAY (Q12 H),CYCLIC ; CYCLICAL
     Route: 048
  16. LENOGRASTIM [Suspect]
     Active Substance: LENOGRASTIM
     Dosage: 5 UG/KG DAILY, CYCLIC (CYCLE 3) CYCLICAL
     Route: 058
  17. DEXAMETHASONE SODIUM PHOSPHATE. [Suspect]
     Active Substance: DEXAMETHASONE SODIUM PHOSPHATE
     Dosage: 5 MG/M2 2XDAY, CYCLIC DAY 1-5 (CYCLE 2) CYCLICAL
     Route: 042
  18. DEXAMETHASONE SODIUM PHOSPHATE. [Suspect]
     Active Substance: DEXAMETHASONE SODIUM PHOSPHATE
     Dosage: 5 MG/M2 2XDAY, CYCLIC;DAY 1-5, 15-19 CYCLICAL
     Route: 042
  19. BUSULFAN. [Suspect]
     Active Substance: BUSULFAN
     Indication: ACUTE LYMPHOCYTIC LEUKAEMIA
     Dosage: UNK
     Route: 065
     Dates: start: 20150904
  20. LENOGRASTIM [Suspect]
     Active Substance: LENOGRASTIM
     Dosage: 5 UG/KG DAILY, CYCLIC ANC{0.5 TO }1.0 (CYCLE 2) CYCLICAL
     Route: 058
  21. FILGRASTIM [Suspect]
     Active Substance: FILGRASTIM
     Dosage: 5 UG/KG DAILY, CYCLIC (CYCLE  3) ; CYCLICAL
     Route: 058
  22. VINCRISTINE SULFATE. [Suspect]
     Active Substance: VINCRISTINE SULFATE
     Indication: ACUTE LYMPHOCYTIC LEUKAEMIA
     Dosage: 1.4 MG/M2, CYCLIC (MAX 2 MG), INFUSION TIME:PUSH CYCLICAL
     Route: 042
  23. METHOTREXATE. [Suspect]
     Active Substance: METHOTREXATE
     Indication: ACUTE LYMPHOCYTIC LEUKAEMIA
     Dosage: 5000 MG/M2, CYCLIC; CYCLICAL
     Route: 042
  24. FILGRASTIM [Suspect]
     Active Substance: FILGRASTIM
     Indication: ACUTE LYMPHOCYTIC LEUKAEMIA
     Dosage: 10 UG/KG, (CYCLE 7), 8 TO HARVEST/ANC GREATER THAN 1.0 ; CYCLICAL
     Route: 058
  25. THIOTEPA. [Suspect]
     Active Substance: THIOTEPA
     Indication: ACUTE LYMPHOCYTIC LEUKAEMIA
     Dosage: 5MG/KG DAY1-2 ;CYCLICAL
     Route: 065
     Dates: start: 20150904
  26. FOLINIC ACID [Suspect]
     Active Substance: LEUCOVORIN
     Indication: ACUTE LYMPHOCYTIC LEUKAEMIA
     Dosage: UNKNOWN
     Route: 065
  27. INOTUZUMAB OZOGAMICIN [Concomitant]
     Active Substance: INOTUZUMAB OZOGAMICIN
     Indication: PRODUCT USED FOR UNKNOWN INDICATION
     Dosage: UNK
     Route: 065

REACTIONS (2)
  - Neurotoxicity [Recovered/Resolved]
  - Seizure [Recovered/Resolved]
